FAERS Safety Report 4696708-3 (Version None)
Quarter: 2005Q2

REPORT INFORMATION
  Report Type: 
  Country: None (occurrence: None)
  Receive Date: 20050622
  Receipt Date: 20050426
  Transmission Date: 20051028
  Serious: Yes (Hospitalization)
  Sender: FDA-Public Use
  Company Number: JP-BOEHRINGER INGELHEIM PHARMACEUTICALS, INC.-2005-BP-06970NB

PATIENT
  Age: 68 Year
  Sex: Male

DRUGS (6)
  1. MEXITIL [Suspect]
     Indication: DIABETIC NEUROPATHY
     Route: 048
     Dates: start: 20050331, end: 20050411
  2. OLMETEC [Concomitant]
     Indication: HYPERTENSION
     Route: 065
     Dates: start: 20050128
  3. ANPLAG [Concomitant]
     Indication: ARTERIOSCLEROSIS
     Route: 065
     Dates: start: 20050320
  4. CYANOCOBALAMIN [Concomitant]
     Indication: DIABETIC NEUROPATHY
     Route: 065
     Dates: start: 20041001
  5. EUGLUCON [Concomitant]
     Indication: DIABETES MELLITUS
     Route: 065
     Dates: start: 20050326
  6. AMLODIN [Concomitant]
     Indication: HYPERTENSION
     Route: 065
     Dates: start: 20050326

REACTIONS (2)
  - ARTERIOSCLEROSIS [None]
  - MUCOCUTANEOUS RASH [None]
